FAERS Safety Report 5574443-7 (Version None)
Quarter: 2007Q4

REPORT INFORMATION
  Report Type: 
  Country: None (occurrence: None)
  Receive Date: 20071226
  Receipt Date: 20071226
  Transmission Date: 20080405
  Serious: No
  Sender: FDA-Public Use
  Company Number: None

PATIENT
  Age: 28 Year
  Sex: Female
  Weight: 90.7194 kg

DRUGS (3)
  1. GEODON [Suspect]
     Indication: BIPOLAR DISORDER
     Dosage: 80 MG A DAY 2 PO
     Route: 048
     Dates: start: 20060414, end: 20070815
  2. SEROQUEL [Suspect]
     Dosage: 200 MG 3 PO
     Route: 048
  3. CIPRO [Concomitant]

REACTIONS (5)
  - CARDIAC MURMUR [None]
  - HYPERSOMNIA [None]
  - HYPOTENSION [None]
  - RHINITIS [None]
  - VENTRICULAR HYPERTROPHY [None]
